FAERS Safety Report 10060983 (Version 4)
Quarter: 2016Q2

REPORT INFORMATION
  Report Type: Report from Study
  Country: CA (occurrence: CA)
  Receive Date: 20140405
  Receipt Date: 20160506
  Transmission Date: 20160815
  Serious: Yes (Other)
  Sender: FDA-Public Use
  Company Number: CA-ROCHE-1292211

PATIENT
  Age: 49 Year
  Sex: Female

DRUGS (9)
  1. METHYLPREDNISOLONE. [Concomitant]
     Active Substance: METHYLPREDNISOLONE
     Route: 042
     Dates: start: 20151027
  2. PREDNISONE. [Concomitant]
     Active Substance: PREDNISONE
  3. ACETAMINOPHEN. [Concomitant]
     Active Substance: ACETAMINOPHEN
     Route: 048
     Dates: start: 20130424
  4. RITUXAN [Suspect]
     Active Substance: RITUXIMAB
     Indication: POLYMYOSITIS
     Dosage: LAST DOSE PRIOR TO SAE WAS ON 08/MAY/2013, INFUSION STOPPED.
     Route: 042
     Dates: start: 20130424
  5. METHYLPREDNISOLONE. [Concomitant]
     Active Substance: METHYLPREDNISOLONE
     Route: 042
     Dates: start: 20130424, end: 20150311
  6. RITUXAN [Suspect]
     Active Substance: RITUXIMAB
     Dosage: INFUSION RESTARTED.
     Route: 042
  7. DIPHENHYDRAMINE HCL [Concomitant]
     Active Substance: DIPHENHYDRAMINE HYDROCHLORIDE
     Route: 048
     Dates: start: 20130424
  8. CYCLOSPORINE. [Concomitant]
     Active Substance: CYCLOSPORINE
  9. RIVOTRIL [Concomitant]
     Active Substance: CLONAZEPAM

REACTIONS (8)
  - Product use issue [Unknown]
  - Alopecia [Not Recovered/Not Resolved]
  - White blood cell count decreased [Unknown]
  - Eye irritation [Recovered/Resolved]
  - Fatigue [Recovered/Resolved]
  - Infusion related reaction [Recovered/Resolved]
  - Headache [Not Recovered/Not Resolved]
  - Nasopharyngitis [Recovering/Resolving]

NARRATIVE: CASE EVENT DATE: 20131104
